FAERS Safety Report 4283300-8 (Version None)
Quarter: 2004Q1

REPORT INFORMATION
  Report Type: 
  Country: None (occurrence: None)
  Receive Date: 20040129
  Receipt Date: 20040114
  Transmission Date: 20041129
  Serious: Yes (Life-Threatening)
  Sender: FDA-Public Use
  Company Number: 204326

PATIENT
  Age: 64 Year
  Sex: Female
  Weight: 45 kg

DRUGS (8)
  1. HERCEPTIN [Suspect]
     Indication: BREAST CANCER METASTATIC
     Dosage: SEE IMAGE
     Route: 042
     Dates: start: 20011025, end: 20011025
  2. HERCEPTIN [Suspect]
     Indication: BREAST CANCER METASTATIC
     Dosage: SEE IMAGE
     Route: 042
     Dates: start: 20011101, end: 20011101
  3. HERCEPTIN [Suspect]
     Indication: BREAST CANCER METASTATIC
     Dosage: SEE IMAGE
     Route: 042
     Dates: start: 20011126, end: 20011126
  4. HERCEPTIN [Suspect]
     Indication: BREAST CANCER METASTATIC
     Dosage: SEE IMAGE
     Route: 042
     Dates: start: 20011225, end: 20020701
  5. HERCEPTIN [Suspect]
     Indication: BREAST CANCER METASTATIC
     Dosage: SEE IMAGE
     Route: 042
     Dates: start: 20030610, end: 20030707
  6. DOCETAXEL (DOCETAXEL) [Concomitant]
  7. PACLITAXEL [Concomitant]
  8. VOLTAREN [Concomitant]

REACTIONS (3)
  - BLOOD PRESSURE DECREASED [None]
  - CHEST PAIN [None]
  - SHOCK [None]
